FAERS Safety Report 6808928-X (Version None)
Quarter: 2010Q2

REPORT INFORMATION
  Report Type: 
  Country: None (occurrence: None)
  Receive Date: 20100630
  Receipt Date: 20091027
  Transmission Date: 20101027
  Serious: No
  Sender: FDA-Public Use
  Company Number: US-PFIZER INC-2009265816

PATIENT
  Sex: Female
  Weight: 84.354 kg

DRUGS (15)
  1. TIKOSYN [Suspect]
     Indication: ATRIAL FIBRILLATION
     Dosage: FREQUENCY: 2X/DAY,
     Dates: start: 20080701
  2. WARFARIN [Concomitant]
     Dosage: UNK
  3. LEXAPRO [Concomitant]
     Dosage: 10 MG, UNK
  4. AMLODIPINE [Concomitant]
     Dosage: 5 MG, UNK
  5. BENAZEPRIL HYDROCHLORIDE [Concomitant]
     Dosage: 20 MG, UNK
  6. FUROSEMIDE [Concomitant]
     Dosage: 40 MG, UNK
  7. POTASSIUM [Concomitant]
     Dosage: UNK
  8. ATENOLOL [Concomitant]
     Dosage: 50 MG, UNK
  9. DICLOFENAC DIETHYLAMINE [Concomitant]
     Dosage: UNIT DOSE: 75;
  10. TRAZODONE [Concomitant]
     Dosage: UNIT DOSE: 50;
  11. HYDROCODONE [Concomitant]
     Dosage: UNIT DOSE: 7.5; FREQUENCY: AS NEEDED,
  12. METHOCARBAMOL [Concomitant]
     Dosage: UNIT DOSE: 500; FREQUENCY: AS NEEDED,
  13. MULTI-VITAMINS [Concomitant]
     Dosage: UNK
  14. VITACAL [Concomitant]
     Dosage: UNIT DOSE: 500;
  15. VITAMIN D3 [Concomitant]

REACTIONS (2)
  - DYSPNOEA [None]
  - OBSTRUCTIVE AIRWAYS DISORDER [None]
